FAERS Safety Report 21654754 (Version 4)
Quarter: 2023Q2

REPORT INFORMATION
  Report Type: Spontaneous
  Country: JP (occurrence: JP)
  Receive Date: 20221129
  Receipt Date: 20230402
  Transmission Date: 20230721
  Serious: Yes (Death, Hospitalization, Other)
  Sender: FDA-Public Use
  Company Number: JP-TAKEDA-2022TJP077871

PATIENT
  Age: 74 Year
  Sex: Male
  Weight: 56 kg

DRUGS (21)
  1. VECTIBIX [Suspect]
     Active Substance: PANITUMUMAB
     Indication: Rectal cancer
     Dosage: 340 MILLIGRAM, Q2WK
     Route: 041
     Dates: start: 20220401, end: 20220520
  2. VECTIBIX [Suspect]
     Active Substance: PANITUMUMAB
     Indication: Metastases to lymph nodes
     Dosage: 340 MILLIGRAM, Q2WK
     Route: 041
     Dates: start: 20220715, end: 20220930
  3. OXALIPLATIN [Suspect]
     Active Substance: OXALIPLATIN
     Indication: Rectal cancer
     Dosage: 130 MILLIGRAM, Q2WK
     Route: 041
     Dates: start: 20220401, end: 20220930
  4. OXALIPLATIN [Suspect]
     Active Substance: OXALIPLATIN
     Indication: Metastases to lymph nodes
     Dosage: UNK
     Route: 065
  5. LEVOLEUCOVORIN CALCIUM [Suspect]
     Active Substance: LEVOLEUCOVORIN CALCIUM
     Indication: Rectal cancer
     Dosage: 300 MILLIGRAM, Q2WK
     Route: 041
     Dates: start: 20220401, end: 20220930
  6. LEVOLEUCOVORIN CALCIUM [Suspect]
     Active Substance: LEVOLEUCOVORIN CALCIUM
     Indication: Metastases to lymph nodes
     Dosage: UNK
     Route: 065
  7. FLUOROURACIL [Suspect]
     Active Substance: FLUOROURACIL
     Indication: Rectal cancer
     Dosage: 600 MILLIGRAM, Q2WK
     Route: 040
     Dates: start: 20220401, end: 20220930
  8. FLUOROURACIL [Suspect]
     Active Substance: FLUOROURACIL
     Indication: Metastases to lymph nodes
     Dosage: 3700 MILLIGRAM, Q2WK
     Route: 041
     Dates: start: 20220401, end: 20220930
  9. Hachiazule [Concomitant]
     Dosage: UNK
     Route: 065
  10. REBAMIPIDE [Concomitant]
     Active Substance: REBAMIPIDE
     Dosage: UNK
     Route: 065
     Dates: start: 20220916
  11. DEXAMETHASONE [Concomitant]
     Active Substance: DEXAMETHASONE
     Dosage: UNK
     Route: 065
  12. LINZESS [Concomitant]
     Active Substance: LINACLOTIDE
     Dosage: UNK
     Route: 065
     Dates: start: 20220329
  13. CLOBETASOL [Concomitant]
     Active Substance: CLOBETASOL
     Dosage: UNK
     Route: 065
  14. AZELNIDIPINE\OLMESARTAN MEDOXOMIL [Concomitant]
     Active Substance: AZELNIDIPINE\OLMESARTAN MEDOXOMIL
     Dosage: UNK
  15. TAMSULOSIN HYDROCHLORIDE [Concomitant]
     Active Substance: TAMSULOSIN HYDROCHLORIDE
     Dosage: UNK
     Route: 065
  16. DUTASTERIDE [Concomitant]
     Active Substance: DUTASTERIDE
     Dosage: UNK
     Route: 065
  17. HEPARINOID [Concomitant]
     Dosage: UNK
     Route: 065
  18. LULICONAZOLE [Concomitant]
     Active Substance: LULICONAZOLE
     Dosage: UNK
     Route: 065
  19. EFINACONAZOLE [Concomitant]
     Active Substance: EFINACONAZOLE
     Dosage: UNK
     Route: 065
  20. CALONAL [Concomitant]
     Active Substance: ACETAMINOPHEN
     Dosage: UNK
     Route: 065
  21. MIRABEGRON [Concomitant]
     Active Substance: MIRABEGRON
     Dosage: UNK
     Route: 065

REACTIONS (8)
  - Pulmonary toxicity [Fatal]
  - Acute respiratory failure [Fatal]
  - Cholelithiasis [Unknown]
  - Interstitial lung disease [Fatal]
  - Pneumonia [Fatal]
  - COVID-19 [Unknown]
  - Blood creatinine increased [Unknown]
  - Hepatic enzyme increased [Unknown]

NARRATIVE: CASE EVENT DATE: 20221007
